FAERS Safety Report 15656961 (Version 1)
Quarter: 2018Q4

REPORT INFORMATION
  Report Type: Spontaneous
  Country: US (occurrence: US)
  Receive Date: 20181115
  Receipt Date: 20181115
  Transmission Date: 20190205
  Serious: No
  Sender: FDA-Public Use
  Company Number: None

PATIENT
  Age: 43 Year
  Sex: Female

DRUGS (1)
  1. IBRANCE [Suspect]
     Active Substance: PALBOCICLIB
     Indication: BREAST CANCER FEMALE
     Dates: start: 20181004, end: 20181020

REACTIONS (3)
  - Neoplasm progression [None]
  - Hepatomegaly [None]
  - Stomatitis [None]

NARRATIVE: CASE EVENT DATE: 20181114
